FAERS Safety Report 12284301 (Version 1)
Quarter: 2016Q2

REPORT INFORMATION
  Report Type: Spontaneous
  Country: US (occurrence: US)
  Receive Date: 20160420
  Receipt Date: 20160420
  Transmission Date: 20160815
  Serious: No
  Sender: FDA-Public Use
  Company Number: US-ASTRAZENECA-2016SE38806

PATIENT
  Age: 26246 Day
  Sex: Female
  Weight: 49.9 kg

DRUGS (5)
  1. CENTRUM [Concomitant]
     Active Substance: VITAMINS
  2. ARIMIDEX [Suspect]
     Active Substance: ANASTROZOLE
     Indication: BREAST CANCER FEMALE
     Route: 048
     Dates: start: 20140317
  3. CITRACAL [Concomitant]
     Active Substance: CALCIUM CITRATE
     Indication: BONE DISORDER
  4. BABY ASPIRIN [Concomitant]
     Active Substance: ASPIRIN
     Indication: CLUSTER HEADACHE
  5. PROLIA [Concomitant]
     Active Substance: DENOSUMAB

REACTIONS (9)
  - Osteopenia [Unknown]
  - Stress [Unknown]
  - Muscle mass [Unknown]
  - Immune system disorder [Unknown]
  - Nodule [Unknown]
  - Headache [Unknown]
  - Alopecia [Recovered/Resolved]
  - Blood pressure abnormal [Unknown]
  - Malaise [Unknown]

NARRATIVE: CASE EVENT DATE: 20150317
